FAERS Safety Report 15042899 (Version 1)
Quarter: 2018Q2

REPORT INFORMATION
  Report Type: Spontaneous
  Country: GB (occurrence: GB)
  Receive Date: 20180621
  Receipt Date: 20180621
  Transmission Date: 20180711
  Serious: Yes (Other)
  Sender: FDA-Public Use
  Company Number: GB-BAYER-2018-115150

PATIENT
  Age: 37 Year
  Sex: Female

DRUGS (1)
  1. CIPROXIN [Suspect]
     Active Substance: CIPROFLOXACIN
     Indication: EAR INFECTION
     Dosage: 1000 MG, QD
     Route: 048
     Dates: start: 20180524

REACTIONS (3)
  - Oral mucosal blistering [Unknown]
  - Blister [Unknown]
  - Lip blister [Unknown]

NARRATIVE: CASE EVENT DATE: 20180525
